FAERS Safety Report 10577266 (Version 2)
Quarter: 2014Q4

REPORT INFORMATION
  Report Type: Spontaneous
  Country: US (occurrence: US)
  Receive Date: 20141111
  Receipt Date: 20141111
  Transmission Date: 20150529
  Serious: Yes (Hospitalization, Other)
  Sender: FDA-Public Use
  Company Number: US-GLAXOSMITHKLINE-A0832390A

PATIENT
  Age: 47 Year
  Sex: Male
  Weight: 147 kg

DRUGS (14)
  1. AVANDIA [Suspect]
     Active Substance: ROSIGLITAZONE MALEATE
     Indication: DIABETES MELLITUS
     Dosage: 4 MG, UNK
     Route: 048
     Dates: start: 2003, end: 20100830
  2. DIOVAN [Concomitant]
     Active Substance: VALSARTAN
  3. ZOCOR [Concomitant]
     Active Substance: SIMVASTATIN
  4. TOPROL XL [Concomitant]
     Active Substance: METOPROLOL SUCCINATE
  5. IMDUR [Concomitant]
     Active Substance: ISOSORBIDE MONONITRATE
  6. LASIX [Concomitant]
     Active Substance: FUROSEMIDE
  7. AVANDAMET [Suspect]
     Active Substance: METFORMIN HYDROCHLORIDE\ROSIGLITAZONE MALEATE
     Indication: DIABETES MELLITUS
     Dosage: UNK
     Route: 048
     Dates: start: 20040503, end: 20060807
  8. NIASPAN [Concomitant]
     Active Substance: NIACIN
  9. NORVASC [Concomitant]
     Active Substance: AMLODIPINE BESYLATE
  10. CPAP [Concomitant]
     Active Substance: DEVICE
  11. HYDRALAZINE [Concomitant]
     Active Substance: HYDRALAZINE HYDROCHLORIDE
  12. METFORMIN [Concomitant]
     Active Substance: METFORMIN HYDROCHLORIDE
  13. PRAVASTATIN SODIUM. [Concomitant]
     Active Substance: PRAVASTATIN SODIUM
  14. DYAZIDE [Concomitant]
     Active Substance: HYDROCHLOROTHIAZIDE\TRIAMTERENE

REACTIONS (8)
  - Pericardial effusion [Unknown]
  - Cerebrovascular accident [Not Recovered/Not Resolved]
  - Congestive cardiomyopathy [Unknown]
  - Cerebral infarction [Unknown]
  - Pulmonary oedema [Unknown]
  - Blood pressure abnormal [Unknown]
  - Hemiplegia [Unknown]
  - Cardiac failure congestive [Unknown]

NARRATIVE: CASE EVENT DATE: 200705
